FAERS Safety Report 4713211-2 (Version None)
Quarter: 2005Q3

REPORT INFORMATION
  Report Type: 
  Country: None (occurrence: None)
  Receive Date: 20050713
  Receipt Date: 19980225
  Transmission Date: 20060218
  Serious: Yes (Hospitalization)
  Sender: FDA-Public Use
  Company Number: AU-MERCK-98037713

PATIENT
  Age: 68 Year
  Sex: Female

DRUGS (3)
  1. NORFLOXACIN [Suspect]
     Indication: URINARY TRACT INFECTION
     Route: 048
     Dates: end: 19980217
  2. ZOCOR [Suspect]
     Indication: HYPERCHOLESTEROLAEMIA
     Route: 048
     Dates: start: 19971001, end: 19980217
  3. TRIMETHOPRIM [Suspect]
     Indication: URINARY TRACT DISORDER
     Route: 048
     Dates: start: 19971101, end: 19980217

REACTIONS (12)
  - ANXIETY DISORDER [None]
  - BURNING SENSATION [None]
  - CHEST DISCOMFORT [None]
  - DIZZINESS [None]
  - DYSGEUSIA [None]
  - FLUSHING [None]
  - HYPERHIDROSIS [None]
  - NAUSEA [None]
  - OESOPHAGEAL SPASM [None]
  - PALPITATIONS [None]
  - TACHYCARDIA [None]
  - TREMOR [None]
